FAERS Safety Report 12779689 (Version 1)
Quarter: 2016Q3

REPORT INFORMATION
  Report Type: Spontaneous
  Country: US (occurrence: US)
  Receive Date: 20160922
  Receipt Date: 20160922
  Transmission Date: 20161109
  Serious: Yes (Hospitalization, Disabling, Other)
  Sender: FDA-Public Use
  Company Number: None

PATIENT
  Age: 61 Year
  Sex: Female
  Weight: 58.97 kg

DRUGS (2)
  1. METFORM [Concomitant]
     Active Substance: METFORMIN HYDROCHLORIDE
  2. FLUOXETINE 40MG RANBA [Suspect]
     Active Substance: FLUOXETINE HYDROCHLORIDE
     Indication: PSYCHOTIC DISORDER
     Dates: start: 20160323, end: 20160323

REACTIONS (3)
  - Dysstasia [None]
  - Asthenia [None]
  - Abasia [None]

NARRATIVE: CASE EVENT DATE: 20160323
